FAERS Safety Report 7125859-9 (Version None)
Quarter: 2010Q4

REPORT INFORMATION
  Report Type: 
  Country: None (occurrence: None)
  Receive Date: 20101129
  Receipt Date: 20101115
  Transmission Date: 20110411
  Serious: Yes (Hospitalization)
  Sender: FDA-Public Use
  Company Number: US-ELI_LILLY_AND_COMPANY-US201011004442

PATIENT
  Age: 47 Year
  Sex: Male

DRUGS (5)
  1. CYMBALTA [Suspect]
     Indication: DEPRESSION
     Dosage: 30 MG, UNK
  2. KLONOPIN [Concomitant]
     Indication: ANXIETY
  3. PROTEIN SUPPLEMENTS [Concomitant]
  4. PLAVIX [Concomitant]
  5. ASPIRIN [Concomitant]
     Dosage: 81 MG, UNK

REACTIONS (6)
  - ADVERSE EVENT [None]
  - CONTUSION [None]
  - DRUG INEFFECTIVE [None]
  - HOSPITALISATION [None]
  - MYOCARDIAL INFARCTION [None]
  - PLATELET COUNT DECREASED [None]
